FAERS Safety Report 4980777-7 (Version None)
Quarter: 2006Q2

REPORT INFORMATION
  Report Type: 
  Country: None (occurrence: None)
  Receive Date: 20060424
  Receipt Date: 20060417
  Transmission Date: 20061013
  Serious: Yes (Hospitalization)
  Sender: FDA-Public Use
  Company Number: US-AVENTIS-200613652US

PATIENT
  Age: 31 Year
  Sex: Female

DRUGS (9)
  1. LASIX [Suspect]
     Dosage: DOSE: UNK
  2. LASIX [Suspect]
     Dosage: DOSE: OVERDOSE
     Dates: start: 20050614, end: 20050614
  3. LUNESTA [Suspect]
     Dosage: DOSE: UNK
     Dates: start: 20050614
  4. TRANDOLAPRIL [Suspect]
     Dosage: DOSE: UNK
     Dates: start: 20050614
  5. VERAPAMIL [Suspect]
     Dosage: DOSE: UNK
     Dates: start: 20050614
  6. AVANDIA [Suspect]
     Dosage: DOSE: UNK
     Dates: start: 20050614
  7. METFORMIN [Suspect]
     Dosage: DOSE: UNK
     Dates: start: 20050614
  8. WELLBUTRIN [Suspect]
     Dosage: DOSE: UNK
  9. ALCOHOL [Suspect]
     Dosage: DOSE: UNK
     Dates: start: 20050614

REACTIONS (3)
  - MULTIPLE DRUG OVERDOSE [None]
  - RESPIRATORY FAILURE [None]
  - SUICIDE ATTEMPT [None]
